FAERS Safety Report 4989692-6 (Version None)
Quarter: 2006Q2

REPORT INFORMATION
  Report Type: 
  Country: None (occurrence: None)
  Receive Date: 20060501
  Receipt Date: 20060419
  Transmission Date: 20061013
  Serious: Yes (Hospitalization)
  Sender: FDA-Public Use
  Company Number: 2006PV012323

PATIENT
  Age: 60 Year
  Sex: Female
  Weight: 87.0906 kg

DRUGS (5)
  1. BYETTA [Suspect]
     Indication: DIABETES MELLITUS NON-INSULIN-DEPENDENT
     Dosage: 10 MCG;BID;SC; 5 MCG;BID;SC
     Route: 058
     Dates: start: 20050805, end: 20051003
  2. BYETTA [Suspect]
     Indication: DIABETES MELLITUS NON-INSULIN-DEPENDENT
     Dosage: 10 MCG;BID;SC; 5 MCG;BID;SC
     Route: 058
     Dates: start: 20051004, end: 20060301
  3. METFORMIN [Concomitant]
  4. NEXIUM [Concomitant]
  5. LISINOPRIL [Concomitant]

REACTIONS (3)
  - CHOLELITHIASIS [None]
  - COLITIS ISCHAEMIC [None]
  - WEIGHT DECREASED [None]
